FAERS Safety Report 8992260 (Version 1)
Quarter: 2012Q4

REPORT INFORMATION
  Report Type: 
  Country: US (occurrence: US)
  Receive Date: 20121231
  Receipt Date: 20121231
  Transmission Date: 20130627
  Serious: Yes (Hospitalization)
  Sender: FDA-Public Use
  Company Number: US-ELI_LILLY_AND_COMPANY-US201212007180

PATIENT
  Age: 60 None
  Sex: Female

DRUGS (11)
  1. FORTEO [Suspect]
     Indication: OSTEOPOROSIS
     Dosage: 20 ug, qd
     Dates: start: 201210
  2. CARDIAZEM [Concomitant]
     Dosage: UNK
  3. CITALOPRAM [Concomitant]
     Dosage: UNK
  4. METHOTREXATE [Concomitant]
     Dosage: UNK
  5. FOLIC ACID [Concomitant]
     Dosage: UNK
  6. SINGULAIR [Concomitant]
     Dosage: UNK
  7. XOPENEX HFA [Concomitant]
     Dosage: UNK
  8. PULMICORT [Concomitant]
     Dosage: UNK
  9. FORMOTEROL W/MOMETASONE [Concomitant]
     Dosage: UNK
  10. SPIRIVA [Concomitant]
     Dosage: UNK UNK, qd
  11. EPIPEN [Concomitant]
     Dosage: UNK

REACTIONS (2)
  - Lung infection [Unknown]
  - Nasopharyngitis [Unknown]
